FAERS Safety Report 6087815-1 (Version None)
Quarter: 2009Q1

REPORT INFORMATION
  Report Type: 
  Country: None (occurrence: None)
  Receive Date: 20090223
  Receipt Date: 20090213
  Transmission Date: 20090719
  Serious: Yes (Hospitalization, Other)
  Sender: FDA-Public Use
  Company Number: US-ABBOTT-09P-163-0557618-00

PATIENT
  Sex: Female
  Weight: 101.7 kg

DRUGS (15)
  1. HUMIRA [Suspect]
     Indication: CROHN'S DISEASE
     Route: 058
     Dates: start: 20071205, end: 20080901
  2. HUMIRA [Suspect]
     Indication: SPINAL OSTEOARTHRITIS
     Route: 058
     Dates: start: 20081115
  3. HUMIRA [Suspect]
     Route: 058
     Dates: start: 20081115
  4. IMURAN [Concomitant]
     Indication: CROHN'S DISEASE
     Route: 048
  5. IMURAN [Concomitant]
  6. LISINOPRIL AND HYDROCHLOROTHIAZIDE [Concomitant]
     Indication: DRUG USE FOR UNKNOWN INDICATION
     Dosage: 20 / 12.5 MG QID
     Route: 048
  7. MULTIPLE VITAMINS [Concomitant]
     Indication: DRUG USE FOR UNKNOWN INDICATION
     Route: 048
  8. SULFASALAZINE [Concomitant]
     Indication: CROHN'S DISEASE
     Route: 048
  9. TYLENOL [Concomitant]
     Indication: DRUG USE FOR UNKNOWN INDICATION
  10. ASCORBIC ACID [Concomitant]
     Indication: DRUG USE FOR UNKNOWN INDICATION
     Route: 048
  11. METHYLPREDNISOLONE 4MG TAB [Concomitant]
     Indication: SPONDYLOARTHROPATHY
     Route: 048
  12. MEDROL [Concomitant]
     Indication: DRUG USE FOR UNKNOWN INDICATION
  13. MEDROL [Concomitant]
  14. PREDNISONE TAB [Concomitant]
     Indication: DRUG USE FOR UNKNOWN INDICATION
  15. PREDNISONE TAB [Concomitant]

REACTIONS (12)
  - ABDOMINAL PAIN LOWER [None]
  - APPENDICITIS [None]
  - ARTHRALGIA [None]
  - ARTHRITIS [None]
  - CAECITIS [None]
  - ILEAL STENOSIS [None]
  - ILEITIS [None]
  - INJECTION SITE ERYTHEMA [None]
  - INTESTINAL FUNCTIONAL DISORDER [None]
  - JOINT SWELLING [None]
  - PRURITUS [None]
  - SKIN INFECTION [None]
